FAERS Safety Report 23238233 (Version 2)
Quarter: 2024Q2

REPORT INFORMATION
  Report Type: Other
  Country: US (occurrence: None)
  Receive Date: 20231129
  Receipt Date: 20240608
  Transmission Date: 20240716
  Serious: No
  Sender: FDA-Public Use
  Company Number: US-ROCHE-3465889

PATIENT
  Age: 62 Year
  Sex: Male

DRUGS (1)
  1. OCREVUS [Suspect]
     Active Substance: OCRELIZUMAB
     Indication: Primary progressive multiple sclerosis
     Route: 065

REACTIONS (5)
  - Influenza [Unknown]
  - Pain [Unknown]
  - Quality of life decreased [Unknown]
  - Multiple sclerosis [Unknown]
  - Drug ineffective [Unknown]
